FAERS Safety Report 8366455-5 (Version None)
Quarter: 2012Q1

REPORT INFORMATION
  Report Type: 
  Country: None (occurrence: None)
  Receive Date: 20120323
  Receipt Date: 20110413
  Transmission Date: 20120608
  Serious: Yes (Other)
  Sender: FDA-Public Use
  Company Number: 163-21880-11041746

PATIENT
  Age: 53 Year
  Sex: Male
  Weight: 70 kg

DRUGS (4)
  1. REVLIMID [Suspect]
     Indication: AMYLOIDOSIS
     Dosage: 15 MG, DAILY ON DAYS 1-21, PO
     Route: 048
     Dates: start: 20110221
  2. PRILOSEC(OMEPRAZOLE)(UNKNOWN) [Concomitant]
  3. ASPIRIN [Concomitant]
  4. NEURONTIN [Concomitant]

REACTIONS (1)
  - RENAL FAILURE [None]
